FAERS Safety Report 12447676 (Version 1)
Quarter: 2016Q2

REPORT INFORMATION
  Report Type: Spontaneous
  Country: US (occurrence: None)
  Receive Date: 20160607
  Receipt Date: 20160607
  Transmission Date: 20160815
  Serious: Yes (Hospitalization)
  Sender: FDA-Public Use
  Company Number: None

PATIENT
  Sex: Male
  Weight: 45.65 kg

DRUGS (12)
  1. PALBOCICLIB [Suspect]
     Active Substance: PALBOCICLIB
     Indication: METASTATIC SQUAMOUS CELL CARCINOMA
     Dosage: 125MG DAYS 1-21 PO
     Route: 048
     Dates: start: 20160204, end: 20160504
  2. MORPHINE [Concomitant]
     Active Substance: MORPHINE
  3. MIDODRINE [Concomitant]
     Active Substance: MIDODRINE
  4. PROCHLORPERAZINE MALEATE. [Concomitant]
     Active Substance: PROCHLORPERAZINE MALEATE
  5. SERTRALINE HCI [Concomitant]
  6. ISOSOURCE [Concomitant]
  7. CETUXIMAB [Suspect]
     Active Substance: CETUXIMAB
     Indication: METASTATIC SQUAMOUS CELL CARCINOMA
     Route: 042
     Dates: start: 20160204, end: 20160505
  8. ENSURE PLUS ORAL LIQUID [Concomitant]
  9. POLYETHYLEINE GLYCOL [Concomitant]
  10. SENNA [Concomitant]
     Active Substance: SENNA LEAF\SENNOSIDES\SENNOSIDES A AND B
  11. PREDNISONE. [Concomitant]
     Active Substance: PREDNISONE
  12. LIDCAINE-PRILOCAINE [Concomitant]

REACTIONS (6)
  - Hypertension [None]
  - Malignant neoplasm progression [None]
  - Tachycardia [None]
  - Grip strength decreased [None]
  - Cerebrovascular accident [None]
  - Facial paralysis [None]

NARRATIVE: CASE EVENT DATE: 20160602
